FAERS Safety Report 10145593 (Version 3)
Quarter: 2014Q2

REPORT INFORMATION
  Report Type: Spontaneous
  Country: SE (occurrence: SE)
  Receive Date: 20140501
  Receipt Date: 20140605
  Transmission Date: 20141212
  Serious: Yes (Other)
  Sender: FDA-Public Use
  Company Number: SE-ASTELLAS-2014EU004258

PATIENT
  Age: 69 Year
  Sex: Female

DRUGS (3)
  1. BETMIGA [Suspect]
     Indication: MICTURITION URGENCY
     Route: 048
     Dates: end: 20140422
  2. BETMIGA [Suspect]
     Indication: POLLAKIURIA
  3. XALATAN [Concomitant]
     Indication: INTRAOCULAR PRESSURE INCREASED
     Dosage: UNK UNK, UNKNOWN FREQ.
     Route: 047

REACTIONS (2)
  - White blood cell count decreased [Recovering/Resolving]
  - Acute myeloid leukaemia [Unknown]
